FAERS Safety Report 9970399 (Version 1)
Quarter: 2014Q1

REPORT INFORMATION
  Report Type: Report from Study
  Country: US (occurrence: US)
  Receive Date: 20140306
  Receipt Date: 20140306
  Transmission Date: 20141002
  Serious: No
  Sender: FDA-Public Use
  Company Number: US-ABBVIE-13P-163-1148966-00

PATIENT
  Age: 61 Year
  Sex: Male

DRUGS (1)
  1. HUMIRA [Suspect]
     Indication: PSORIATIC ARTHROPATHY
     Dates: start: 20130514

REACTIONS (4)
  - Injection site extravasation [Unknown]
  - Herpes ophthalmic [Recovered/Resolved]
  - Injection site haemorrhage [Unknown]
  - Incorrect dose administered [Unknown]
